FAERS Safety Report 4564348-2 (Version None)
Quarter: 2005Q1

REPORT INFORMATION
  Report Type: 
  Country: None (occurrence: None)
  Receive Date: 20050126
  Receipt Date: 20050107
  Transmission Date: 20050727
  Serious: Yes (Death, Hospitalization, Other)
  Sender: FDA-Public Use
  Company Number: US_0501110026

PATIENT
  Age: 78 Year
  Sex: Male

DRUGS (3)
  1. GEMCITABINE HYDROCHLORIDE-IV (GEMCITABINE) [Suspect]
     Indication: B-CELL LYMPHOMA
     Dosage: 1000 MG/M2 OTHER
  2. RITUXIMAB [Concomitant]
  3. PREDNISONE [Concomitant]

REACTIONS (11)
  - BLOOD DISORDER [None]
  - DISEASE PROGRESSION [None]
  - DIVERTICULITIS [None]
  - DRUG TOXICITY [None]
  - FLUID OVERLOAD [None]
  - MYOCARDIAL INFARCTION [None]
  - NAUSEA [None]
  - NEUTROPENIA [None]
  - OEDEMA PERIPHERAL [None]
  - PERIPHERAL SENSORY NEUROPATHY [None]
  - RASH [None]
